FAERS Safety Report 12450359 (Version 2)
Quarter: 2016Q3

REPORT INFORMATION
  Report Type: Spontaneous
  Country: US (occurrence: US)
  Receive Date: 20160609
  Receipt Date: 20160825
  Transmission Date: 20161109
  Serious: No
  Sender: FDA-Public Use
  Company Number: US-PFIZER INC-2016285787

PATIENT
  Age: 39 Year

DRUGS (1)
  1. DAYPRO [Suspect]
     Active Substance: OXAPROZIN
     Dosage: UNK

REACTIONS (1)
  - Drug hypersensitivity [Unknown]
